FAERS Safety Report 10264113 (Version 1)
Quarter: 2014Q2

REPORT INFORMATION
  Report Type: Spontaneous
  Country: TW (occurrence: TW)
  Receive Date: 20140627
  Receipt Date: 20140627
  Transmission Date: 20141212
  Serious: Yes (Hospitalization)
  Sender: FDA-Public Use
  Company Number: TW-AMGEN-TWNSP2014047928

PATIENT
  Age: 62 Year
  Sex: Male

DRUGS (5)
  1. ENBREL [Suspect]
     Indication: RHEUMATOID ARTHRITIS
     Dosage: 25 MG, 2X/WEEK
     Route: 058
     Dates: start: 20090216
  2. SULFASALAZINE [Concomitant]
     Indication: RHEUMATOID ARTHRITIS
     Dosage: UNK, TID
     Route: 048
  3. CELEBREX [Concomitant]
     Indication: RHEUMATOID ARTHRITIS
     Dosage: UNK, BID
     Route: 048
  4. PREDNISOLON                        /00016201/ [Concomitant]
     Indication: RHEUMATOID ARTHRITIS
     Dosage: 5 MG, 2X/DAY
     Route: 048
  5. STROCAIN                           /00130301/ [Concomitant]
     Indication: PROPHYLAXIS
     Dosage: UNK
     Route: 048

REACTIONS (1)
  - Joint swelling [Not Recovered/Not Resolved]
